FAERS Safety Report 8223681-3 (Version None)
Quarter: 2012Q1

REPORT INFORMATION
  Report Type: 
  Country: None (occurrence: None)
  Receive Date: 20120321
  Receipt Date: 20120309
  Transmission Date: 20120608
  Serious: Yes (Hospitalization)
  Sender: FDA-Public Use
  Company Number: FR-ELI_LILLY_AND_COMPANY-FR201201004356

PATIENT
  Age: 86 Year
  Sex: Female

DRUGS (8)
  1. POLY-KARAYA [Concomitant]
  2. FORTEO [Suspect]
     Indication: OSTEOPOROSIS
     Dosage: 20 UG, QD
     Route: 058
     Dates: start: 20111021
  3. RISPERDAL [Concomitant]
  4. PANTOPRAZOLE [Concomitant]
  5. CELIPROLOL [Concomitant]
  6. VITAMIN D [Concomitant]
  7. ART 50 [Concomitant]
  8. FENOFIBRATE [Concomitant]

REACTIONS (1)
  - NO ADVERSE EVENT [None]
